FAERS Safety Report 25543591 (Version 2)
Quarter: 2025Q3

REPORT INFORMATION
  Report Type: Spontaneous
  Country: JP (occurrence: JP)
  Receive Date: 20250711
  Receipt Date: 20250810
  Transmission Date: 20251020
  Serious: Yes (Death, Hospitalization, Other)
  Sender: ALEXION PHARMACEUTICALS
  Company Number: JP-ASTRAZENECA-250008207_013120_P_1

PATIENT
  Age: 81 Year
  Sex: Male
  Weight: 59 kg

DRUGS (3)
  1. DURVALUMAB [Suspect]
     Active Substance: DURVALUMAB
     Indication: Hepatocellular carcinoma
     Dosage: 1500 MILLIGRAM, Q4W
     Dates: start: 20250108
  2. TREMELIMUMAB [Suspect]
     Active Substance: TREMELIMUMAB
     Indication: Hepatocellular carcinoma
     Dates: start: 20250108, end: 20250108
  3. PREDONINE [Concomitant]
     Active Substance: PREDNISOLONE

REACTIONS (5)
  - Death [Fatal]
  - Diarrhoea [Recovered/Resolved]
  - Immune-mediated enterocolitis [Unknown]
  - Interstitial lung disease [Not Recovered/Not Resolved]
  - Pneumonia viral [Unknown]
